FAERS Safety Report 4981662-7 (Version None)
Quarter: 2006Q2

REPORT INFORMATION
  Report Type: 
  Country: None (occurrence: None)
  Receive Date: 20060425
  Receipt Date: 20060413
  Transmission Date: 20061013
  Serious: Yes (Hospitalization)
  Sender: FDA-Public Use
  Company Number: PHBS2006SE05460

PATIENT
  Age: 26 Year
  Sex: Female

DRUGS (2)
  1. VOLTAREN [Suspect]
     Indication: ABDOMINAL PAIN
     Dosage: 1 DF, ONCE/SINGLE
     Route: 042
     Dates: start: 20060102, end: 20060102
  2. TRIMETHOPRIM ^ASTRA^ [Concomitant]
     Indication: URINARY TRACT INFECTION

REACTIONS (9)
  - BACK PAIN [None]
  - FEELING HOT [None]
  - HEADACHE [None]
  - INCORRECT ROUTE OF DRUG ADMINISTRATION [None]
  - INJECTION SITE IRRITATION [None]
  - MOVEMENT DISORDER [None]
  - NAUSEA [None]
  - PAIN [None]
  - VERTIGO [None]
